FAERS Safety Report 4345368-X (Version None)
Quarter: 2004Q2

REPORT INFORMATION
  Report Type: 
  Country: None (occurrence: None)
  Receive Date: 20040423
  Receipt Date: 20040408
  Transmission Date: 20050107
  Serious: Yes (Life-Threatening)
  Sender: FDA-Public Use
  Company Number: 2004024853

PATIENT
  Age: 62 Year
  Sex: Male

DRUGS (5)
  1. VFEND [Suspect]
     Indication: ASPERGILLOSIS
  2. AMPHOTERICIN B [Concomitant]
  3. CASPOFUNGIN ACETATE [Concomitant]
  4. PAROXETINE HCL [Concomitant]
  5. ALLOPURINOL TAB [Concomitant]

REACTIONS (4)
  - CARDIAC FAILURE [None]
  - DYSPNOEA [None]
  - GRAFT VERSUS HOST DISEASE [None]
  - OEDEMA PERIPHERAL [None]
